FAERS Safety Report 8426780-6 (Version None)
Quarter: 2012Q2

REPORT INFORMATION
  Report Type: 
  Country: None (occurrence: None)
  Receive Date: 20120611
  Receipt Date: 20120608
  Transmission Date: 20120825
  Serious: Yes (Death, Hospitalization)
  Sender: FDA-Public Use
  Company Number: PHHY2012JP049254

PATIENT
  Age: 59 Year
  Sex: Male

DRUGS (2)
  1. DOCETAXEL [Suspect]
     Indication: LUNG SQUAMOUS CELL CARCINOMA STAGE UNSPECIFIED
     Dosage: UNK UKN, UNK
  2. DEXAMETHASONE [Concomitant]
     Indication: LUNG SQUAMOUS CELL CARCINOMA STAGE UNSPECIFIED
     Dosage: UNK UKN, UNK

REACTIONS (6)
  - ACUTE INTERSTITIAL PNEUMONITIS [None]
  - DEATH [None]
  - RESPIRATORY FAILURE [None]
  - LYMPHOCYTOSIS [None]
  - ACUTE LUNG INJURY [None]
  - RALES [None]
